FAERS Safety Report 5306355-8 (Version None)
Quarter: 2007Q2

REPORT INFORMATION
  Report Type: 
  Country: None (occurrence: None)
  Receive Date: 20070424
  Receipt Date: 20070416
  Transmission Date: 20071010
  Serious: Yes (Hospitalization)
  Sender: FDA-Public Use
  Company Number: KE-GILEAD-2007-0011899

PATIENT
  Age: 33 Year
  Sex: Female
  Weight: 69 kg

DRUGS (3)
  1. EMTRICITABINE/TENOFOVIR DISOPROXIL FUMARATE [Suspect]
     Indication: HIV INFECTION
     Route: 048
     Dates: start: 20060718
  2. KALETRA [Concomitant]
     Indication: HIV INFECTION
     Route: 048
     Dates: start: 20060718
  3. ENOXAPARIN SODIUM [Concomitant]
     Route: 058

REACTIONS (1)
  - CHOLECYSTITIS [None]
